FAERS Safety Report 4994896-2 (Version None)
Quarter: 2006Q2

REPORT INFORMATION
  Report Type: 
  Country: None (occurrence: None)
  Receive Date: 20060503
  Receipt Date: 20060425
  Transmission Date: 20061013
  Serious: Yes (Other)
  Sender: FDA-Public Use
  Company Number: 2006056507

PATIENT
  Age: 57 Year
  Sex: Female
  Weight: 92.0802 kg

DRUGS (3)
  1. LYRICA [Suspect]
     Indication: FIBROMYALGIA
     Dosage: 100 MG (50 MG, 2 IN 1 D), ORAL
     Route: 048
     Dates: start: 20060418
  2. TRAZODONE HCL [Concomitant]
  3. VICODIN [Concomitant]

REACTIONS (3)
  - EUPHORIC MOOD [None]
  - HUNGER [None]
  - HYPERPHAGIA [None]
